FAERS Safety Report 7820010-1 (Version None)
Quarter: 2011Q4

REPORT INFORMATION
  Report Type: 
  Country: None (occurrence: None)
  Receive Date: 20111018
  Receipt Date: 20111006
  Transmission Date: 20120403
  Serious: Yes (Other)
  Sender: FDA-Public Use
  Company Number: PHEH2011US06102

PATIENT
  Sex: Female

DRUGS (4)
  1. TOPAMAX [Concomitant]
     Dosage: 2 DF, UNK
  2. LEVETIRACETAM [Concomitant]
     Dosage: 2 DF, UNK
  3. TEGRETOL-XR [Suspect]
     Dosage: 2 DF, UNK
     Dates: end: 20020101
  4. TEGRETOL-XR [Suspect]
     Dosage: UNK UKN, UNK
     Dates: start: 20070101

REACTIONS (3)
  - HEADACHE [None]
  - PYREXIA [None]
  - CONVULSION [None]
